FAERS Safety Report 7041192-8 (Version None)
Quarter: 2010Q4

REPORT INFORMATION
  Report Type: 
  Country: None (occurrence: None)
  Receive Date: 20101013
  Receipt Date: 20101006
  Transmission Date: 20110411
  Serious: Yes (Other)
  Sender: FDA-Public Use
  Company Number: BE-BAYER-201041735GPV

PATIENT
  Age: 71 Year
  Sex: Female

DRUGS (3)
  1. MOXIFLOXACIN HCL [Suspect]
     Indication: RESPIRATORY TRACT INFECTION
     Dosage: TOTAL DAILY DOSE: 400 MG  UNIT DOSE: 400 MG
     Route: 048
  2. ISOPTIN [Concomitant]
     Indication: ARRHYTHMIA
     Route: 048
  3. THYROID HORMONES [Concomitant]
     Indication: HYPOTHYROIDISM

REACTIONS (3)
  - HYPERTENSION [None]
  - RESPIRATORY DEPRESSION [None]
  - TACHYCARDIA [None]
